FAERS Safety Report 18078082 (Version 1)
Quarter: 2020Q3

REPORT INFORMATION
  Report Type: Spontaneous
  Country: US (occurrence: US)
  Receive Date: 20200728
  Receipt Date: 20200728
  Transmission Date: 20201103
  Serious: Yes (Other)
  Sender: FDA-Public Use
  Company Number: US-STRIDES ARCOLAB LIMITED-2019SP013510

PATIENT
  Age: 27 Year
  Sex: Male

DRUGS (11)
  1. PYRAZINAMIDE. [Suspect]
     Active Substance: PYRAZINAMIDE
     Indication: PULMONARY TUBERCULOSIS
     Dosage: 1500 MILLIGRAM DISSOLVED IN 5 ML NORMAL SALINE (0.9% NACL) BEFORE THEIR SCHEDULED SURGERY
     Route: 065
  2. CLARITHROMYCIN. [Suspect]
     Active Substance: CLARITHROMYCIN
     Indication: PULMONARY TUBERCULOSIS
     Dosage: UNK, OTHER STEADY?STATE DRUGS
     Route: 065
  3. ISONIAZID. [Suspect]
     Active Substance: ISONIAZID
     Indication: PULMONARY TUBERCULOSIS
     Dosage: 300 MILLIGRAM DISSOLVED IN 5 ML NORMAL SALINE (0.9% NACL) BEFORE THEIR SCHEDULED SURGERY
     Route: 065
  4. RIFAMPICIN [Suspect]
     Active Substance: RIFAMPIN
     Indication: PULMONARY TUBERCULOSIS
     Dosage: 600 MILLIGRAM DISSOLVED IN 5 ML NORMAL SALINE (0.9% NACL) BEFORE THEIR SCHEDULED SURGERY
     Route: 065
  5. MOXIFLOXACIN. [Suspect]
     Active Substance: MOXIFLOXACIN
     Indication: PULMONARY TUBERCULOSIS
     Dosage: 400 MILLIGRAM DISSOLVED IN 5 ML NORMAL SALINE (0.9% NACL) BEFORE THEIR SCHEDULED SURGERY
     Route: 065
  6. MOXIFLOXACIN. [Suspect]
     Active Substance: MOXIFLOXACIN
     Dosage: UNK, STUDY STEADY STATE DRUG
     Route: 065
  7. KANAMYCIN [Suspect]
     Active Substance: KANAMYCIN A SULFATE
     Dosage: UNK, STUDY STEADY STATE DRUG
     Route: 065
  8. LINEZOLID. [Suspect]
     Active Substance: LINEZOLID
     Dosage: 450 MILLIGRAM
     Route: 065
  9. AMOXICILLIN W/CLAVULANIC ACID [Suspect]
     Active Substance: AMOXICILLIN\CLAVULANIC ACID
     Indication: PULMONARY TUBERCULOSIS
     Dosage: UNK, OTHER STEADY?STATE DRUGS
     Route: 065
  10. KANAMYCIN [Suspect]
     Active Substance: KANAMYCIN A SULFATE
     Indication: PULMONARY TUBERCULOSIS
     Dosage: 1000 MILLIGRAM DISSOLVED IN 5 ML NORMAL SALINE (0.9% NACL) BEFORE THEIR SCHEDULED SURGERY
     Route: 065
  11. LINEZOLID. [Suspect]
     Active Substance: LINEZOLID
     Indication: PULMONARY TUBERCULOSIS
     Dosage: UNK
     Route: 065

REACTIONS (1)
  - Treatment failure [Unknown]
